FAERS Safety Report 17541171 (Version 1)
Quarter: 2020Q1

REPORT INFORMATION
  Report Type: Spontaneous
  Country: US (occurrence: US)
  Receive Date: 20200313
  Receipt Date: 20200313
  Transmission Date: 20200409
  Serious: Yes (Other)
  Sender: FDA-Public Use
  Company Number: US-SA-2020SA063713

PATIENT
  Sex: Female

DRUGS (1)
  1. ZANTAC [Suspect]
     Active Substance: RANITIDINE HYDROCHLORIDE
     Dosage: 150 MG, QD
     Dates: start: 2010, end: 2019

REACTIONS (3)
  - Anxiety [Unknown]
  - Colorectal cancer [Unknown]
  - Rectal cancer [Unknown]

NARRATIVE: CASE EVENT DATE: 20170428
